FAERS Safety Report 18197676 (Version 2)
Quarter: 2020Q3

REPORT INFORMATION
  Report Type: Spontaneous
  Country: US (occurrence: US)
  Receive Date: 20200826
  Receipt Date: 20200902
  Transmission Date: 20201103
  Serious: No
  Sender: FDA-Public Use
  Company Number: US-PFIZER INC-2020328553

PATIENT
  Age: 54 Year
  Sex: Female

DRUGS (1)
  1. XELJANZ XR [Suspect]
     Active Substance: TOFACITINIB CITRATE
     Indication: RHEUMATOID ARTHRITIS
     Dosage: 11 MG, DAILY, (TAKE ONE TABLET BY MOUTH DAILY)
     Route: 048

REACTIONS (7)
  - Pain [Unknown]
  - Depression [Unknown]
  - Inflammation [Unknown]
  - Increased tendency to bruise [Unknown]
  - Diarrhoea [Unknown]
  - Stomatitis [Unknown]
  - Dizziness [Unknown]
